FAERS Safety Report 15358305 (Version 1)
Quarter: 2018Q3

REPORT INFORMATION
  Report Type: Spontaneous
  Country: US (occurrence: US)
  Receive Date: 20180906
  Receipt Date: 20180906
  Transmission Date: 20181010
  Serious: No
  Sender: FDA-Public Use
  Company Number: US-PERRIGO-18US003634

PATIENT
  Age: 54 Year
  Sex: Female
  Weight: 79.37 kg

DRUGS (2)
  1. EVAMIST [Suspect]
     Active Substance: ESTRADIOL
     Indication: OESTROGEN REPLACEMENT THERAPY
     Dosage: 1.53 MG, QD
     Route: 062
     Dates: start: 2017, end: 20180328
  2. EVAMIST [Suspect]
     Active Substance: ESTRADIOL
     Indication: ACCIDENTAL EXPOSURE TO PRODUCT
     Dosage: SMALL AMOUNT, SINGLE
     Route: 062
     Dates: start: 20180329, end: 20180329

REACTIONS (1)
  - Accidental exposure to product [Recovered/Resolved]

NARRATIVE: CASE EVENT DATE: 20180329
